FAERS Safety Report 15370609 (Version 1)
Quarter: 2018Q3

REPORT INFORMATION
  Report Type: Spontaneous
  Country: US (occurrence: US)
  Receive Date: 20180911
  Receipt Date: 20180911
  Transmission Date: 20181010
  Serious: No
  Sender: FDA-Public Use
  Company Number: US-BEH-2018094666

PATIENT
  Age: 10 Year
  Sex: Male

DRUGS (1)
  1. HUMATE?P [Suspect]
     Active Substance: HUMAN COAGULATION FACTOR VIII/VON WILLEBRAND FACTOR COMPLEX
     Indication: COAGULOPATHY
     Dosage: 1575 IU, PRN
     Route: 042
     Dates: start: 20170920

REACTIONS (2)
  - Wound [Unknown]
  - Contusion [Unknown]
